FAERS Safety Report 9110749 (Version 1)
Quarter: 2013Q1

REPORT INFORMATION
  Report Type: Spontaneous
  Country: US (occurrence: US)
  Receive Date: 20130219
  Receipt Date: 20130219
  Transmission Date: 20140127
  Serious: Yes (Other)
  Sender: FDA-Public Use
  Company Number: US-BRISTOL-MYERS SQUIBB COMPANY-16942039

PATIENT
  Sex: Female

DRUGS (4)
  1. ABATACEPT SUBQ INJECTION 125MG/ML [Suspect]
     Dosage: PREVIOUSLY  27AUG2012.1DF=125MG/ML.
     Route: 058
  2. ORENCIA [Suspect]
     Route: 042
  3. TRAMADOL [Concomitant]
  4. PREDNISONE [Concomitant]

REACTIONS (6)
  - Dizziness [Unknown]
  - Nausea [Unknown]
  - Throat tightness [Unknown]
  - Swollen tongue [Unknown]
  - Feeling abnormal [Unknown]
  - Drug ineffective [Unknown]
